FAERS Safety Report 18675033 (Version 1)
Quarter: 2020Q4

REPORT INFORMATION
  Report Type: Spontaneous
  Country: US (occurrence: US)
  Receive Date: 20201228
  Receipt Date: 20201228
  Transmission Date: 20210114
  Serious: Yes (Hospitalization)
  Sender: FDA-Public Use
  Company Number: None

PATIENT
  Age: 61 Year
  Sex: Male

DRUGS (7)
  1. PREDNISONE. [Concomitant]
     Active Substance: PREDNISONE
  2. COLCHICINE. [Concomitant]
     Active Substance: COLCHICINE
  3. SODIUM BICAR [Concomitant]
  4. EPOGEN [Suspect]
     Active Substance: ERYTHROPOIETIN
     Indication: ANAEMIA
     Dosage: ?          OTHER FREQUENCY:ONCE A WEEK;?
     Route: 058
     Dates: start: 20181222
  5. CYCLOBENZAPR [Concomitant]
     Active Substance: CYCLOBENZAPRINE
  6. ONDANSETRON [Concomitant]
     Active Substance: ONDANSETRON
  7. HYDROCO/APAP [Concomitant]
     Active Substance: ACETAMINOPHEN\HYDROCODONE

REACTIONS (1)
  - Acidosis [None]

NARRATIVE: CASE EVENT DATE: 20201101
